FAERS Safety Report 5011391-5 (Version None)
Quarter: 2006Q2

REPORT INFORMATION
  Report Type: 
  Country: None (occurrence: None)
  Receive Date: 20060404
  Receipt Date: 20051107
  Transmission Date: 20061013
  Serious: No
  Sender: FDA-Public Use
  Company Number: US_0511123816

PATIENT
  Age: 40 Year
  Sex: Female

DRUGS (1)
  1. CYMBALTA [Suspect]
     Indication: MOOD SWINGS
     Dosage: 60 MG
     Dates: start: 20050401

REACTIONS (3)
  - DEPRESSION [None]
  - ESSENTIAL TREMOR [None]
  - NIGHT SWEATS [None]
